FAERS Safety Report 9206160 (Version 1)
Quarter: 2013Q1

REPORT INFORMATION
  Report Type: Spontaneous
  Country: US (occurrence: None)
  Receive Date: 20120709
  Receipt Date: 20120709
  Transmission Date: 20140127
  Serious: Yes (Other)
  Sender: FDA-Public Use
  Company Number: PHHY2010US32236

PATIENT
  Age: 78 Year
  Sex: Female

DRUGS (1)
  1. GLEEVEC (IMATINIB) UNKNOWN [Suspect]
     Indication: CHRONIC MYELOID LEUKAEMIA
     Route: 048
     Dates: start: 20100430

REACTIONS (9)
  - Syncope [None]
  - Headache [None]
  - Alopecia [None]
  - Tremor [None]
  - Muscular weakness [None]
  - Pain in extremity [None]
  - Gingival pain [None]
  - Dizziness [None]
  - Fatigue [None]
